FAERS Safety Report 15647595 (Version 4)
Quarter: 2019Q3

REPORT INFORMATION
  Report Type: Spontaneous
  Country: US (occurrence: US)
  Receive Date: 20181122
  Receipt Date: 20190702
  Transmission Date: 20191004
  Serious: Yes (Other)
  Sender: FDA-Public Use
  Company Number: US-SA-2018SA317991

PATIENT
  Age: 60 Year
  Sex: Female
  Weight: 54.43 kg

DRUGS (15)
  1. CEFAZOLIN [Concomitant]
     Active Substance: CEFAZOLIN
     Dosage: UNK
     Dates: start: 20061004, end: 20061004
  2. DIPHENHYDRAMINE. [Concomitant]
     Active Substance: DIPHENHYDRAMINE
  3. HERCEPTIN [Concomitant]
     Active Substance: TRASTUZUMAB
  4. ACETAMINOPHEN. [Concomitant]
     Active Substance: ACETAMINOPHEN
  5. BACITRACIN. [Concomitant]
     Active Substance: BACITRACIN
     Dosage: UNK
     Dates: start: 20061004, end: 20061004
  6. ONDANSETRON [Concomitant]
     Active Substance: ONDANSETRON
  7. ONDASETRON [ONDANSETRON] [Concomitant]
     Dosage: UNK
     Dates: start: 20061004, end: 20061004
  8. TAXOTERE [Suspect]
     Active Substance: DOCETAXEL
     Indication: BREAST CANCER
     Dosage: 20 MG, Q3W
     Route: 042
     Dates: start: 20061006, end: 20061006
  9. LIDOCAINE. [Concomitant]
     Active Substance: LIDOCAINE
     Dosage: UNK
     Dates: start: 20061004, end: 20061004
  10. FENTANYL. [Concomitant]
     Active Substance: FENTANYL
     Indication: BREAST CANCER
     Dosage: UNK
     Dates: start: 20061004, end: 20061004
  11. TAXOTERE [Suspect]
     Active Substance: DOCETAXEL
     Dosage: 20 MG, Q3W
     Route: 042
     Dates: start: 20070119, end: 20070119
  12. PARAPLATIN [Concomitant]
     Active Substance: CARBOPLATIN
  13. LORAZEPAM. [Concomitant]
     Active Substance: LORAZEPAM
  14. DEXAMETHASONE. [Concomitant]
     Active Substance: DEXAMETHASONE
  15. HEPARIN [Concomitant]
     Active Substance: HEPARIN SODIUM
     Dosage: UNK
     Dates: start: 20061004, end: 20071031

REACTIONS (1)
  - Alopecia [Recovering/Resolving]

NARRATIVE: CASE EVENT DATE: 20070719
